FAERS Safety Report 7766184-2 (Version None)
Quarter: 2011Q3

REPORT INFORMATION
  Report Type: 
  Country: None (occurrence: None)
  Receive Date: 20110921
  Receipt Date: 20110912
  Transmission Date: 20111222
  Serious: Yes (Hospitalization)
  Sender: FDA-Public Use
  Company Number: US-ASTRAZENECA-2011SE54745

PATIENT
  Sex: Female

DRUGS (2)
  1. SYMBICORT [Suspect]
     Indication: CHRONIC OBSTRUCTIVE PULMONARY DISEASE
     Dosage: 2 PUFFS, TWO TIMES A DAY
     Route: 055
     Dates: start: 20080101
  2. TOPROL-XL [Suspect]
     Route: 048

REACTIONS (5)
  - CARDIAC FAILURE CONGESTIVE [None]
  - PNEUMONIA [None]
  - DRUG HYPERSENSITIVITY [None]
  - CANDIDIASIS [None]
  - CHRONIC OBSTRUCTIVE PULMONARY DISEASE [None]
